FAERS Safety Report 4356693-0 (Version None)
Quarter: 2004Q2

REPORT INFORMATION
  Report Type: 
  Country: None (occurrence: None)
  Receive Date: 20040507
  Receipt Date: 20040420
  Transmission Date: 20050107
  Serious: Yes (Death)
  Sender: FDA-Public Use
  Company Number: USA040464563

PATIENT
  Age: 83 Year
  Sex: Female

DRUGS (1)
  1. SYMBYAX [Suspect]
     Dates: start: 20040222

REACTIONS (10)
  - CARCINOMA [None]
  - CONFUSIONAL STATE [None]
  - CONTUSION [None]
  - DISORIENTATION [None]
  - DYSPHAGIA [None]
  - DYSSTASIA [None]
  - EXCORIATION [None]
  - FALL [None]
  - HYPERSOMNIA [None]
  - SOMNOLENCE [None]
